FAERS Safety Report 6522270-6 (Version None)
Quarter: 2009Q4

REPORT INFORMATION
  Report Type: 
  Country: None (occurrence: None)
  Receive Date: 20091230
  Receipt Date: 20091222
  Transmission Date: 20100525
  Serious: Yes (Hospitalization, Other)
  Sender: FDA-Public Use
  Company Number: US-JNJFOC-20091206693

PATIENT
  Sex: Male
  Weight: 93.44 kg

DRUGS (8)
  1. DURAGESIC-100 [Suspect]
     Indication: BACK PAIN
     Route: 062
  2. FENTANYL [Suspect]
     Indication: BACK PAIN
     Route: 062
  3. HYDROCODONE [Concomitant]
     Indication: PAIN
     Dosage: 5/50 MG
     Route: 048
  4. NASONEX [Concomitant]
     Indication: SINUS DISORDER
     Route: 045
  5. ADVAIR DISKUS 100/50 [Concomitant]
     Indication: CHRONIC OBSTRUCTIVE PULMONARY DISEASE
     Dosage: 250/50
     Route: 055
  6. NEXIUM [Concomitant]
     Indication: GASTROOESOPHAGEAL REFLUX DISEASE
     Route: 048
  7. LEXAPRO [Concomitant]
     Indication: DRUG USE FOR UNKNOWN INDICATION
     Route: 048
  8. DICLOFENAC SODIUM [Concomitant]
     Indication: MUSCLE DISORDER
     Route: 048

REACTIONS (8)
  - APPLICATION SITE BURN [None]
  - APPLICATION SITE ERYTHEMA [None]
  - BACK PAIN [None]
  - DERMATITIS CONTACT [None]
  - DIABETES MELLITUS [None]
  - INSOMNIA [None]
  - INTERVERTEBRAL DISC DISORDER [None]
  - TOTAL LUNG CAPACITY DECREASED [None]
